FAERS Safety Report 13860215 (Version 2)
Quarter: 2017Q3

REPORT INFORMATION
  Report Type: Spontaneous
  Country: BR (occurrence: BR)
  Receive Date: 20170811
  Receipt Date: 20170815
  Transmission Date: 20171127
  Serious: Yes (Other)
  Sender: FDA-Public Use
  Company Number: BR-SA-2017SA133016

PATIENT
  Sex: Female
  Weight: 54 kg

DRUGS (1)
  1. CLEXANE SAFETY LOCK [Suspect]
     Active Substance: ENOXAPARIN SODIUM
     Indication: HYPERCOAGULATION
     Dosage: THREE WEEKS AGO (ESTIMATED BY JUL-2017)
     Route: 065
     Dates: start: 201707

REACTIONS (2)
  - Foetal growth restriction [Unknown]
  - Heart rate increased [Unknown]
